FAERS Safety Report 6092606-1 (Version None)
Quarter: 2009Q1

REPORT INFORMATION
  Report Type: 
  Country: None (occurrence: None)
  Receive Date: 20090225
  Receipt Date: 20081118
  Transmission Date: 20090719
  Serious: No
  Sender: FDA-Public Use
  Company Number: US-BRISTOL-MYERS SQUIBB COMPANY-14410955

PATIENT
  Age: 17 Year
  Sex: Female
  Weight: 52 kg

DRUGS (1)
  1. KENALOG [Suspect]
     Indication: RESPIRATORY TRACT INFECTION
     Route: 030
     Dates: start: 20080520

REACTIONS (1)
  - INJECTION SITE ATROPHY [None]
